FAERS Safety Report 21095174 (Version 4)
Quarter: 2022Q3

REPORT INFORMATION
  Report Type: Spontaneous
  Country: US (occurrence: US)
  Receive Date: 20220718
  Receipt Date: 20220902
  Transmission Date: 20221027
  Serious: No
  Sender: FDA-Public Use
  Company Number: US-PFIZER INC-202200966620

PATIENT
  Age: 62 Year
  Sex: Female
  Weight: 51.71 kg

DRUGS (7)
  1. PAXLOVID [Suspect]
     Active Substance: NIRMATRELVIR\RITONAVIR
     Indication: COVID-19 treatment
     Dosage: [PF-07321332 300 MG]/[RITONAVIR 100 MG]; 2X/DAY)
     Route: 048
     Dates: start: 20220711
  2. TOPAMAX [Concomitant]
     Active Substance: TOPIRAMATE
     Dosage: 25 MG
  3. CLONAZEPAM [Concomitant]
     Active Substance: CLONAZEPAM
     Dosage: 1 MG
  4. ALPRAZOLAM [Concomitant]
     Active Substance: ALPRAZOLAM
     Dosage: 25 MG
  5. ALLOPURINOL [Concomitant]
     Active Substance: ALLOPURINOL
     Dosage: 25 MG
  6. MAGNESIUM [Concomitant]
     Active Substance: MAGNESIUM
     Dosage: 500 MG
  7. POTASSIUM [Concomitant]
     Active Substance: POTASSIUM
     Dosage: 8 UG

REACTIONS (1)
  - Dysgeusia [Not Recovered/Not Resolved]
